FAERS Safety Report 6044354-1 (Version None)
Quarter: 2009Q1

REPORT INFORMATION
  Report Type: 
  Country: None (occurrence: None)
  Receive Date: 20090120
  Receipt Date: 20090108
  Transmission Date: 20090719
  Serious: Yes (Other)
  Sender: FDA-Public Use
  Company Number: US-JNJFOC-20090103308

PATIENT
  Age: 41 Year
  Sex: Male

DRUGS (9)
  1. REMICADE [Suspect]
     Dosage: TOTAL OF 3 INFUSIONS ADMINISTERED
     Route: 042
  2. REMICADE [Suspect]
     Dosage: SECOND DOSE
     Route: 042
  3. REMICADE [Suspect]
     Indication: PSORIATIC ARTHROPATHY
     Route: 042
  4. SORIATANE [Concomitant]
     Indication: PSORIATIC ARTHROPATHY
  5. HUMIRA [Concomitant]
     Indication: PSORIATIC ARTHROPATHY
  6. ENBREL [Concomitant]
     Indication: PSORIATIC ARTHROPATHY
  7. CYCLOSPORINE [Concomitant]
     Indication: PSORIATIC ARTHROPATHY
  8. METHOTREXATE [Concomitant]
     Indication: PSORIATIC ARTHROPATHY
  9. ALL OTHER THERAPEUTIC PRODUCTS [Concomitant]
     Indication: INSOMNIA

REACTIONS (35)
  - ABDOMINAL PAIN UPPER [None]
  - AMNESIA [None]
  - ARTHRALGIA [None]
  - ARTHROPATHY [None]
  - ASTHENIA [None]
  - BODY TEMPERATURE DECREASED [None]
  - BRONCHITIS [None]
  - CARDIOVASCULAR DISORDER [None]
  - COELIAC DISEASE [None]
  - COGNITIVE DISORDER [None]
  - CONSTIPATION [None]
  - DELAYED SLEEP PHASE [None]
  - DIVERTICULITIS [None]
  - DYSPEPSIA [None]
  - ECZEMA [None]
  - FATIGUE [None]
  - FEELING ABNORMAL [None]
  - FOLLICULITIS [None]
  - FOOD ALLERGY [None]
  - GASTROINTESTINAL INFLAMMATION [None]
  - GENERAL PHYSICAL HEALTH DETERIORATION [None]
  - HERPES ZOSTER [None]
  - HYPOPNOEA [None]
  - INFLUENZA [None]
  - LETHARGY [None]
  - MIGRAINE [None]
  - NAUSEA [None]
  - NEUROPATHY PERIPHERAL [None]
  - PSORIATIC ARTHROPATHY [None]
  - RHINITIS [None]
  - SHOULDER OPERATION [None]
  - SKIN DISORDER [None]
  - TEMPERATURE INTOLERANCE [None]
  - URTICARIA [None]
  - UVULOPALATOPHARYNGOPLASTY [None]
